FAERS Safety Report 4950577-2 (Version None)
Quarter: 2006Q1

REPORT INFORMATION
  Report Type: 
  Country: None (occurrence: None)
  Receive Date: 20060321
  Receipt Date: 20060321
  Transmission Date: 20060701
  Serious: Yes (Other)
  Sender: FDA-Public Use
  Company Number: None

PATIENT
  Age: 16 Year
  Sex: Male
  Weight: 53.5244 kg

DRUGS (1)
  1. LUPRON [Suspect]
     Indication: PRECOCIOUS PUBERTY
     Dosage: 7.5 MG IM Q MO
     Route: 030
     Dates: start: 20051201, end: 20060201

REACTIONS (1)
  - URTICARIA GENERALISED [None]
